FAERS Safety Report 7138276-2 (Version None)
Quarter: 2010Q4

REPORT INFORMATION
  Report Type: 
  Country: None (occurrence: None)
  Receive Date: 20101202
  Receipt Date: 20101202
  Transmission Date: 20110411
  Serious: Yes (Hospitalization)
  Sender: FDA-Public Use
  Company Number: None

PATIENT
  Age: 65 Year
  Sex: Male
  Weight: 144 kg

DRUGS (2)
  1. LITHIUM CARBONATE [Suspect]
     Indication: MANIA
     Dosage: 900 MG EVERY DAY PO
     Route: 048
     Dates: start: 19980217, end: 20090603
  2. ATENOLOL [Suspect]
     Indication: HYPERTENSION
     Dosage: 25 MG EVERY DAY PO
     Route: 048
     Dates: start: 20020403, end: 20090603

REACTIONS (6)
  - ANTIPSYCHOTIC DRUG LEVEL ABOVE THERAPEUTIC [None]
  - BRADYCARDIA [None]
  - DEHYDRATION [None]
  - DIARRHOEA [None]
  - DRUG CLEARANCE DECREASED [None]
  - RENAL IMPAIRMENT [None]
